FAERS Safety Report 23910919 (Version 3)
Quarter: 2024Q4

REPORT INFORMATION
  Report Type: Spontaneous
  Country: US (occurrence: US)
  Receive Date: 20240528
  Receipt Date: 20241125
  Transmission Date: 20250115
  Serious: Yes (Hospitalization)
  Sender: AVADEL CNS PHARMACEUTICALS, LLC
  Company Number: US-AVADEL CNS PHARMACEUTICALS, LLC-2024AVA00550

PATIENT
  Sex: Female

DRUGS (11)
  1. LUMRYZ [Suspect]
     Active Substance: SODIUM OXYBATE
     Indication: Narcolepsy
     Dosage: 4.5 G, ONCE NIGHTLY
     Route: 048
     Dates: start: 2024, end: 202404
  2. LUMRYZ [Suspect]
     Active Substance: SODIUM OXYBATE
     Indication: Somnolence
     Dosage: 4.5 G, ONCE NIGHTLY
     Route: 048
     Dates: start: 202405, end: 2024
  3. LUMRYZ [Suspect]
     Active Substance: SODIUM OXYBATE
     Indication: Cataplexy
     Dosage: 4.5 G, ONCE NIGHTLY
     Route: 048
     Dates: start: 202410
  4. LUMRYZ [Suspect]
     Active Substance: SODIUM OXYBATE
     Indication: Narcolepsy
     Dosage: 6 G, ONCE NIGHTLY
     Route: 048
     Dates: start: 202404, end: 2024
  5. LUMRYZ [Suspect]
     Active Substance: SODIUM OXYBATE
     Indication: Somnolence
     Dosage: 6 G, ONCE NIGHTLY
     Route: 048
     Dates: start: 202405, end: 20240528
  6. LUMRYZ [Suspect]
     Active Substance: SODIUM OXYBATE
     Indication: Cataplexy
     Dosage: 6 G, ONCE NIGHTLY
     Route: 048
     Dates: start: 20241004, end: 202410
  7. TRINTELLIX [Concomitant]
     Active Substance: VORTIOXETINE HYDROBROMIDE
  8. GABAPENTIN [Concomitant]
     Active Substance: GABAPENTIN
  9. LOTRONEX [Concomitant]
     Active Substance: ALOSETRON HYDROCHLORIDE
  10. ARMODAFINIL [Concomitant]
     Active Substance: ARMODAFINIL
  11. UNSPECIFIED INGREDIENT [Concomitant]
     Active Substance: UNSPECIFIED INGREDIENT

REACTIONS (17)
  - Nausea [Recovering/Resolving]
  - Diarrhoea [Recovering/Resolving]
  - Vomiting [Recovering/Resolving]
  - Anxiety [Unknown]
  - Panic attack [Recovering/Resolving]
  - Initial insomnia [Recovering/Resolving]
  - Burning sensation [Recovering/Resolving]
  - Middle insomnia [Not Recovered/Not Resolved]
  - Illness [Not Recovered/Not Resolved]
  - Papule [Not Recovered/Not Resolved]
  - Influenza [Recovered/Resolved]
  - Paraesthesia [Recovering/Resolving]
  - Dizziness [Recovering/Resolving]
  - Unevaluable event [Unknown]
  - Hypersensitivity [Not Recovered/Not Resolved]
  - Drug ineffective [Not Recovered/Not Resolved]
  - Product administration interrupted [Recovered/Resolved]

NARRATIVE: CASE EVENT DATE: 20240101
